FAERS Safety Report 11296057 (Version 2)
Quarter: 2015Q4

REPORT INFORMATION
  Report Type: Spontaneous
  Country: US (occurrence: US)
  Receive Date: 20150722
  Receipt Date: 20151027
  Transmission Date: 20160304
  Serious: No
  Sender: FDA-Public Use
  Company Number: US-ELI_LILLY_AND_COMPANY-US201002006249

PATIENT
  Age: 68 Year
  Sex: Female

DRUGS (3)
  1. SYNTHROID [Concomitant]
     Active Substance: LEVOTHYROXINE SODIUM
     Dosage: UNK, UNKNOWN
     Route: 065
  2. EVISTA [Suspect]
     Active Substance: RALOXIFENE HYDROCHLORIDE
     Indication: OSTEOPOROSIS
     Dosage: 60 MG, DAILY (1/D)
     Route: 065
     Dates: end: 201002
  3. FORTEO [Suspect]
     Active Substance: TERIPARATIDE
     Indication: OSTEOPOROSIS
     Dosage: 20 UG, DAILY (1/D)
     Route: 065
     Dates: start: 201002

REACTIONS (19)
  - Pneumonia [Unknown]
  - Arthralgia [Unknown]
  - Abnormal dreams [Unknown]
  - Paraesthesia [Unknown]
  - Dry mouth [Unknown]
  - Diarrhoea [Unknown]
  - Hypoaesthesia [Unknown]
  - Nausea [Unknown]
  - Non-cardiac chest pain [Unknown]
  - Joint swelling [Unknown]
  - Balance disorder [Unknown]
  - Burning sensation [Unknown]
  - Pain in extremity [Unknown]
  - Joint warmth [Unknown]
  - Fall [Unknown]
  - Fear [Unknown]
  - Myalgia [Unknown]
  - Fall [Unknown]
  - Muscle spasms [Unknown]

NARRATIVE: CASE EVENT DATE: 20100117
